FAERS Safety Report 9773746 (Version 1)
Quarter: 2013Q4

REPORT INFORMATION
  Report Type: Spontaneous
  Country: FR (occurrence: FR)
  Receive Date: 20131219
  Receipt Date: 20131219
  Transmission Date: 20140711
  Serious: Yes (Hospitalization)
  Sender: FDA-Public Use
  Company Number: FR-US-EMD SERONO, INC.-7257528

PATIENT
  Sex: Female

DRUGS (3)
  1. OVITRELLE [Suspect]
     Indication: IN VITRO FERTILISATION
     Route: 058
     Dates: start: 20130819
  2. PUREGON /01348901/ [Suspect]
     Indication: IN VITRO FERTILISATION
     Route: 058
     Dates: start: 20130810, end: 20130818
  3. ORGALUTRAN /01453701/ [Suspect]
     Indication: IN VITRO FERTILISATION
     Dosage: 0.25 MG/ 0.5 ML
     Route: 058
     Dates: start: 20130815, end: 20130818

REACTIONS (3)
  - Dyspnoea [Recovered/Resolved]
  - Ascites [Recovered/Resolved]
  - Ovarian hyperstimulation syndrome [Recovered/Resolved]
